FAERS Safety Report 9494155 (Version 3)
Quarter: 2013Q4

REPORT INFORMATION
  Report Type: Spontaneous
  Country: FR (occurrence: FR)
  Receive Date: 20130903
  Receipt Date: 20131219
  Transmission Date: 20140711
  Serious: Yes (Other)
  Sender: FDA-Public Use
  Company Number: PHHY2013FR095518

PATIENT
  Sex: Female
  Weight: 65 kg

DRUGS (7)
  1. STALEVO [Suspect]
     Indication: PARKINSON^S DISEASE
     Dosage: 6 DF, QD
     Route: 048
     Dates: start: 20110328
  2. STALEVO [Suspect]
     Dosage: 3 DF, QD
     Route: 048
  3. XANAX [Concomitant]
     Indication: ANXIETY
     Dosage: 3 DF, QD
  4. XANAX [Concomitant]
     Indication: PANIC ATTACK
  5. SEROPLEX [Concomitant]
     Dosage: 1 DF, QD
  6. IMOVANE [Concomitant]
     Dosage: 1 DF, QD
  7. LEVOTHYROX [Concomitant]
     Dosage: 1 DF, QD

REACTIONS (8)
  - Tremor [Not Recovered/Not Resolved]
  - Weight decreased [Not Recovered/Not Resolved]
  - Throat tightness [Not Recovered/Not Resolved]
  - Suffocation feeling [Not Recovered/Not Resolved]
  - Tooth loss [Not Recovered/Not Resolved]
  - Alopecia [Not Recovered/Not Resolved]
  - Tooth discolouration [Not Recovered/Not Resolved]
  - Chromaturia [Unknown]
